FAERS Safety Report 5031912-6 (Version None)
Quarter: 2006Q2

REPORT INFORMATION
  Report Type: 
  Country: None (occurrence: None)
  Receive Date: 20060619
  Receipt Date: 20060609
  Transmission Date: 20061013
  Serious: Yes (Other)
  Sender: FDA-Public Use
  Company Number: 2006073174

PATIENT
  Sex: Male

DRUGS (1)
  1. NICORETTE [Suspect]
     Dosage: 12 TO 18 CAPSULES DAILY, ORAL
     Route: 048

REACTIONS (4)
  - DECOMPRESSION SICKNESS [None]
  - DRUG ABUSER [None]
  - DRUG DEPENDENCE [None]
  - INTENTIONAL OVERDOSE [None]
